FAERS Safety Report 10102533 (Version 1)
Quarter: 2014Q2

REPORT INFORMATION
  Report Type: Report from Study
  Country: TR (occurrence: TR)
  Receive Date: 20140424
  Receipt Date: 20140424
  Transmission Date: 20141212
  Serious: Yes (Death)
  Sender: FDA-Public Use
  Company Number: TR-SA-2014SA051223

PATIENT
  Age: 63 Year
  Sex: Male
  Weight: 78 kg

DRUGS (5)
  1. ALEMTUZUMAB [Suspect]
     Indication: T-CELL PROLYMPHOCYTIC LEUKAEMIA
     Dosage: 3 MG AT DAY1, 10 MG ON DAY 2, 30 MG ON DAY3
     Route: 065
     Dates: start: 20131223, end: 20140407
  2. MEROPENEM [Concomitant]
     Indication: SKIN INFECTION
  3. ANTIBIOTICS [Concomitant]
     Route: 042
  4. GANCICLOVIR [Concomitant]
     Indication: CYTOMEGALOVIRUS INFECTION
     Route: 042
  5. VALGANCICLOVIR [Concomitant]
     Indication: PROPHYLAXIS

REACTIONS (1)
  - Septic shock [Fatal]
